FAERS Safety Report 15449547 (Version 2)
Quarter: 2018Q4

REPORT INFORMATION
  Report Type: Spontaneous
  Country: US (occurrence: US)
  Receive Date: 20181001
  Receipt Date: 20181004
  Transmission Date: 20190204
  Serious: Yes (Hospitalization)
  Sender: FDA-Public Use
  Company Number: US-ASTRAZENECA-2018SF20715

PATIENT
  Sex: Male

DRUGS (1)
  1. BYDUREON BCISE [Suspect]
     Active Substance: EXENATIDE
     Route: 065

REACTIONS (7)
  - Renal failure [Unknown]
  - Dehydration [Unknown]
  - Blood urea abnormal [Unknown]
  - Vomiting projectile [Unknown]
  - Nausea [Unknown]
  - Decreased appetite [Unknown]
  - Blood creatinine increased [Unknown]
